FAERS Safety Report 25205574 (Version 1)
Quarter: 2025Q2

REPORT INFORMATION
  Report Type: Spontaneous
  Country: US (occurrence: US)
  Receive Date: 20250417
  Receipt Date: 20250417
  Transmission Date: 20250716
  Serious: Yes (Hospitalization, Other)
  Sender: RANBAXY
  Company Number: US-SUN PHARMACEUTICAL INDUSTRIES LTD-2025R1-503371

PATIENT
  Age: 61 Year
  Sex: Male

DRUGS (1)
  1. PHENOBARBITAL [Suspect]
     Active Substance: PHENOBARBITAL
     Indication: Alcohol abuse
     Route: 065

REACTIONS (7)
  - Toxicity to various agents [Unknown]
  - Metabolic acidosis [Recovering/Resolving]
  - Drug level increased [Recovering/Resolving]
  - Encephalopathy [Recovering/Resolving]
  - Brain stem syndrome [Recovering/Resolving]
  - Mental status changes [Recovering/Resolving]
  - Hyperammonaemia [Recovering/Resolving]
